FAERS Safety Report 25757306 (Version 1)
Quarter: 2025Q3

REPORT INFORMATION
  Report Type: Spontaneous
  Country: US (occurrence: US)
  Receive Date: 20250903
  Receipt Date: 20250903
  Transmission Date: 20251020
  Serious: Yes (Hospitalization, Other)
  Sender: ELI LILLY AND COMPANY
  Company Number: US-ELI_LILLY_AND_COMPANY-US202508023529

PATIENT
  Age: 62 Year
  Sex: Female

DRUGS (9)
  1. MOUNJARO [Suspect]
     Active Substance: TIRZEPATIDE
     Indication: Product used for unknown indication
     Route: 058
  2. MOUNJARO [Suspect]
     Active Substance: TIRZEPATIDE
     Indication: Product used for unknown indication
     Route: 058
  3. MOUNJARO [Suspect]
     Active Substance: TIRZEPATIDE
     Indication: Product used for unknown indication
     Route: 058
  4. MOUNJARO [Suspect]
     Active Substance: TIRZEPATIDE
     Indication: Product used for unknown indication
     Route: 058
  5. MOUNJARO [Suspect]
     Active Substance: TIRZEPATIDE
     Indication: Product used for unknown indication
     Route: 058
  6. MOUNJARO [Suspect]
     Active Substance: TIRZEPATIDE
     Route: 058
  7. MOUNJARO [Suspect]
     Active Substance: TIRZEPATIDE
     Route: 058
  8. MOUNJARO [Suspect]
     Active Substance: TIRZEPATIDE
     Route: 058
  9. MOUNJARO [Suspect]
     Active Substance: TIRZEPATIDE
     Route: 058

REACTIONS (9)
  - Craniocerebral injury [Unknown]
  - Sepsis [Unknown]
  - Speech disorder [Unknown]
  - Memory impairment [Unknown]
  - Tooth loss [Unknown]
  - Fall [Unknown]
  - Injury [Unknown]
  - Dyspnoea [Unknown]
  - Incorrect dose administered [Unknown]

NARRATIVE: CASE EVENT DATE: 20240901
